FAERS Safety Report 16426111 (Version 1)
Quarter: 2019Q3

REPORT INFORMATION
  Report Type: Spontaneous
  Country: US (occurrence: US)
  Receive Date: 20190612
  Receipt Date: 20190612
  Transmission Date: 20191004
  Serious: Yes (Other)
  Sender: FDA-Public Use
  Company Number: None

PATIENT
  Age: 30 Year
  Sex: Female

DRUGS (2)
  1. SUBLOCADE [Suspect]
     Active Substance: BUPRENORPHINE
  2. SUBLOCADE [Suspect]
     Active Substance: BUPRENORPHINE
     Dates: start: 20190612

REACTIONS (2)
  - Syringe issue [None]
  - Incorrect dose administered [None]

NARRATIVE: CASE EVENT DATE: 20190612
